FAERS Safety Report 19500228 (Version 2)
Quarter: 2021Q3

REPORT INFORMATION
  Report Type: Report from Study
  Country: US (occurrence: US)
  Receive Date: 20210707
  Receipt Date: 20210910
  Transmission Date: 20211014
  Serious: Yes (Hospitalization, Other)
  Sender: FDA-Public Use
  Company Number: US-SA-2020SA347475

PATIENT
  Age: 72 Year
  Sex: Female

DRUGS (2)
  1. ALGLUCOSIDASE ALFA [Suspect]
     Active Substance: ALGLUCOSIDASE ALFA
     Dosage: 1300 MG, QOW
     Route: 041
     Dates: start: 20201117
  2. ALGLUCOSIDASE ALFA [Suspect]
     Active Substance: ALGLUCOSIDASE ALFA
     Indication: GLYCOGEN STORAGE DISEASE TYPE II
     Dosage: 1300 MG, QOW
     Route: 041
     Dates: start: 20190604

REACTIONS (6)
  - Lumbar vertebral fracture [Unknown]
  - Fall [Unknown]
  - Pulmonary function test decreased [Recovering/Resolving]
  - Cataract [Not Recovered/Not Resolved]
  - Headache [Recovered/Resolved]
  - Product storage error [Unknown]

NARRATIVE: CASE EVENT DATE: 2020
